FAERS Safety Report 19588581 (Version 1)
Quarter: 2021Q3

REPORT INFORMATION
  Report Type: Spontaneous
  Country: JP (occurrence: JP)
  Receive Date: 20210721
  Receipt Date: 20210721
  Transmission Date: 20211014
  Serious: Yes (Death)
  Sender: FDA-Public Use
  Company Number: JP-BAYER-2021-179220

PATIENT
  Age: 60 Year
  Sex: Female

DRUGS (4)
  1. SAMSCA [Concomitant]
     Active Substance: TOLVAPTAN
     Route: 048
  2. WARFARIN POTASSIUM [Concomitant]
     Active Substance: WARFARIN POTASSIUM
     Route: 048
  3. OPSUMIT [Concomitant]
     Active Substance: MACITENTAN
     Route: 048
  4. ADEMPAS [Suspect]
     Active Substance: RIOCIGUAT
     Indication: PULMONARY HYPERTENSION
     Dosage: 2.5 MG, TID
     Dates: start: 201608, end: 202005

REACTIONS (1)
  - Death [Fatal]
